FAERS Safety Report 8688776 (Version 2)
Quarter: 2012Q4

REPORT INFORMATION
  Report Type: 
  Country: JP (occurrence: JP)
  Receive Date: 20120727
  Receipt Date: 20121003
  Transmission Date: 20130627
  Serious: Yes (Hospitalization)
  Sender: FDA-Public Use
  Company Number: JP-B.I. PHARMACEUTICALS,INC./RIDGEFIELD-2012-BP-16271NB

PATIENT

DRUGS (1)
  1. PRAZAXA [Suspect]
     Route: 048

REACTIONS (1)
  - Infection [Unknown]
